FAERS Safety Report 5878816-4 (Version None)
Quarter: 2008Q3

REPORT INFORMATION
  Report Type: 
  Country: None (occurrence: None)
  Receive Date: 20080910
  Receipt Date: 20080902
  Transmission Date: 20090109
  Serious: Yes (Hospitalization)
  Sender: FDA-Public Use
  Company Number: 2008BI017703

PATIENT
  Age: 40 Year
  Sex: Female

DRUGS (7)
  1. TYSABRI [Suspect]
     Indication: MULTIPLE SCLEROSIS
     Dosage: 300 MG; QM; IV
     Route: 042
     Dates: start: 20071128, end: 20080521
  2. LEXAPRO [Concomitant]
  3. AMANTADINE [Concomitant]
  4. PROVIGIL [Concomitant]
  5. NEURONTIN [Concomitant]
  6. WELLBUTRIN [Concomitant]
  7. ALESE [Concomitant]

REACTIONS (5)
  - FEELING ABNORMAL [None]
  - HYPERTONIA [None]
  - HYPOREFLEXIA [None]
  - LIVEDO RETICULARIS [None]
  - PULMONARY EMBOLISM [None]
